FAERS Safety Report 24555038 (Version 2)
Quarter: 2024Q4

REPORT INFORMATION
  Report Type: Spontaneous
  Country: IT (occurrence: IT)
  Receive Date: 20241028
  Receipt Date: 20241113
  Transmission Date: 20250115
  Serious: Yes (Other)
  Sender: ACCORD
  Company Number: IT-Accord-453306

PATIENT
  Age: 72 Year
  Sex: Male

DRUGS (3)
  1. CAPECITABINE [Suspect]
     Active Substance: CAPECITABINE
     Indication: Colorectal cancer
     Dosage: PRE-SURGERY
     Dates: start: 202006
  2. OXALIPLATIN [Suspect]
     Active Substance: OXALIPLATIN
     Indication: Colorectal cancer
     Dosage: POST-SURGERY, HE RECEIVED SIX CYCLES OF OXALIPLATIN AND CAPECITABINE UNTIL MAY 2021
     Dates: end: 202105
  3. CAPECITABINE [Suspect]
     Active Substance: CAPECITABINE
     Indication: Colorectal cancer
     Dosage: POST-SURGERY, HE RECEIVED SIX CYCLES OF OXALIPLATIN AND CAPECITABINE UNTIL MAY 2021
     Dates: end: 202105

REACTIONS (1)
  - Acute promyelocytic leukaemia [Recovered/Resolved]

NARRATIVE: CASE EVENT DATE: 20230101
